FAERS Safety Report 23217842 (Version 1)
Quarter: 2023Q4

REPORT INFORMATION
  Report Type: Spontaneous
  Country: CN (occurrence: CN)
  Receive Date: 20231122
  Receipt Date: 20231122
  Transmission Date: 20240110
  Serious: Yes (Hospitalization, Other)
  Sender: FDA-Public Use
  Company Number: CN-PFIZER INC-PV202300188650

PATIENT
  Age: 21 Year
  Sex: Female
  Weight: 57 kg

DRUGS (3)
  1. METHOTREXATE SODIUM [Suspect]
     Active Substance: METHOTREXATE SODIUM
     Indication: Ectopic pregnancy
     Dosage: 75 MG, 1X/DAY
     Route: 030
     Dates: start: 20230927, end: 20230927
  2. METHYLPREDNISOLONE SODIUM SUCCINATE [Suspect]
     Active Substance: METHYLPREDNISOLONE SODIUM SUCCINATE
     Indication: Upper respiratory tract infection
     Dosage: 80 MG, 1X/DAY
     Route: 042
     Dates: start: 20231001, end: 20231001
  3. CEFUROXIME SODIUM [Concomitant]
     Active Substance: CEFUROXIME SODIUM
     Indication: Upper respiratory tract infection
     Dosage: 1.5 G, 3X/DAY
     Route: 041
     Dates: start: 20231001, end: 20231005

REACTIONS (16)
  - Haematemesis [Recovering/Resolving]
  - Nausea [Recovering/Resolving]
  - Upper respiratory tract infection [Unknown]
  - Condition aggravated [Unknown]
  - Hypoaesthesia [Unknown]
  - Vomiting [Recovered/Resolved]
  - Mucosal disorder [Recovering/Resolving]
  - Mucosal haemorrhage [Recovering/Resolving]
  - Rash [Not Recovered/Not Resolved]
  - Pruritus [Recovering/Resolving]
  - Rash erythematous [Not Recovered/Not Resolved]
  - Dermatitis [Unknown]
  - Epistaxis [Recovering/Resolving]
  - Nasal dryness [Recovering/Resolving]
  - Capillary disorder [Recovering/Resolving]
  - Off label use [Unknown]

NARRATIVE: CASE EVENT DATE: 20230927
